FAERS Safety Report 5977363-9 (Version None)
Quarter: 2008Q4

REPORT INFORMATION
  Report Type: 
  Country: None (occurrence: None)
  Receive Date: 20081203
  Receipt Date: 20081125
  Transmission Date: 20090506
  Serious: Yes (Other)
  Sender: FDA-Public Use
  Company Number: PHHY2008JP26334

PATIENT
  Age: 68 Year
  Sex: Female

DRUGS (4)
  1. ZOMETA [Suspect]
     Indication: MULTIPLE MYELOMA
     Dosage: 4 MG, QMO
     Route: 042
     Dates: start: 20060801, end: 20080201
  2. ZOMETA [Suspect]
     Indication: BONE LESION
  3. VELCADE [Suspect]
     Route: 042
  4. BENET [Concomitant]
     Dosage: 2.5 MG, UNK
     Route: 048
     Dates: start: 20040901, end: 20060701

REACTIONS (4)
  - BONE DISORDER [None]
  - GASTROINTESTINAL DISORDER [None]
  - HYPOAESTHESIA [None]
  - OSTEONECROSIS [None]
